FAERS Safety Report 24610439 (Version 2)
Quarter: 2024Q4

REPORT INFORMATION
  Report Type: Spontaneous
  Country: US (occurrence: US)
  Receive Date: 20241112
  Receipt Date: 20241216
  Transmission Date: 20250115
  Serious: No
  Sender: SUNOVION
  Company Number: US-SMPA-2024SPA004850AA

PATIENT

DRUGS (7)
  1. ORGOVYX [Suspect]
     Active Substance: RELUGOLIX
     Indication: Prostate cancer
     Dosage: 360 MG, SINGLE
     Route: 048
     Dates: start: 202410, end: 202410
  2. ORGOVYX [Suspect]
     Active Substance: RELUGOLIX
     Dosage: 120 MG, QD
     Route: 048
     Dates: start: 20241005
  3. ALEVE [Concomitant]
     Active Substance: NAPROXEN SODIUM
     Route: 065
  4. AMOXICILLIN [Concomitant]
     Active Substance: AMOXICILLIN
     Route: 065
  5. METOPROLOL TARTRATE [Concomitant]
     Active Substance: METOPROLOL TARTRATE
     Route: 065
  6. PROPYLTHIOURACIL [Concomitant]
     Active Substance: PROPYLTHIOURACIL
     Route: 065
  7. XTANDI [Concomitant]
     Active Substance: ENZALUTAMIDE
     Route: 065

REACTIONS (4)
  - Photophobia [Unknown]
  - Constipation [Unknown]
  - Loss of libido [Unknown]
  - Hot flush [Unknown]

NARRATIVE: CASE EVENT DATE: 20241001
